FAERS Safety Report 7380601-1 (Version None)
Quarter: 2011Q1

REPORT INFORMATION
  Report Type: 
  Country: None (occurrence: None)
  Receive Date: 20110321
  Receipt Date: 20110316
  Transmission Date: 20110831
  Serious: Yes (Other)
  Sender: FDA-Public Use
  Company Number: 20119933

PATIENT
  Sex: Male

DRUGS (1)
  1. LIORESAL [Suspect]
     Indication: MUSCLE SPASTICITY
     Dosage: DAILY, INTRATHECAL
     Route: 039

REACTIONS (4)
  - CONSTIPATION [None]
  - ABDOMINAL DISTENSION [None]
  - ILEUS [None]
  - WOUND INFECTION STAPHYLOCOCCAL [None]
